FAERS Safety Report 12948194 (Version 1)
Quarter: 2016Q4

REPORT INFORMATION
  Report Type: Spontaneous
  Country: KR (occurrence: KR)
  Receive Date: 20161116
  Receipt Date: 20161116
  Transmission Date: 20170207
  Serious: Yes (Death)
  Sender: FDA-Public Use
  Company Number: KR-FRESENIUS KABI-FK201608829

PATIENT
  Sex: Male

DRUGS (1)
  1. PROPOFOL MCT FRESENIUS (NOT SPECIFIED) [Suspect]
     Active Substance: PROPOFOL
     Indication: COMPLETED SUICIDE
     Route: 065

REACTIONS (2)
  - Suicide attempt [Fatal]
  - Death [Fatal]

NARRATIVE: CASE EVENT DATE: 20161110
